FAERS Safety Report 21191138 (Version 1)
Quarter: 2022Q3

REPORT INFORMATION
  Report Type: Spontaneous
  Country: None (occurrence: US)
  Receive Date: 20220809
  Receipt Date: 20220809
  Transmission Date: 20221027
  Serious: No
  Sender: FDA-Public Use
  Company Number: US-Mission Pharmacal Company-2131639

PATIENT
  Age: 31 Year
  Sex: Female

DRUGS (3)
  1. THIOLA EC [Suspect]
     Active Substance: TIOPRONIN
     Indication: Cystinuria
     Route: 048
     Dates: start: 20140823
  2. QUETIAPINE [Concomitant]
     Active Substance: QUETIAPINE
  3. PROMETHAZINE [Concomitant]
     Active Substance: PROMETHAZINE HYDROCHLORIDE

REACTIONS (7)
  - Heart rate increased [Unknown]
  - Postural orthostatic tachycardia syndrome [Unknown]
  - Vitamin D decreased [Unknown]
  - Blood folate decreased [Unknown]
  - Vitamin B12 decreased [Unknown]
  - Weight increased [Unknown]
  - Decreased appetite [Unknown]
